FAERS Safety Report 6411938-8 (Version None)
Quarter: 2009Q4

REPORT INFORMATION
  Report Type: 
  Country: None (occurrence: None)
  Receive Date: 20091021
  Receipt Date: 20090324
  Transmission Date: 20100525
  Serious: Yes (Hospitalization)
  Sender: FDA-Public Use
  Company Number: 2009AP001100

PATIENT
  Age: 7 Year
  Sex: Female

DRUGS (8)
  1. CLOPIDOGREL [Suspect]
     Indication: THROMBOSIS IN DEVICE
     Dosage: 75 MG;QD
  2. ALLOPURINOL [Concomitant]
  3. AMLODIPINE [Concomitant]
  4. LANSOPRAZOLE [Concomitant]
  5. METOPROLOL [Concomitant]
  6. SIMVASTATIN [Concomitant]
  7. VALSARTAN [Concomitant]
  8. ACETYLSALICYLIC ACID [Concomitant]

REACTIONS (6)
  - ABDOMINAL PAIN UPPER [None]
  - CHOLESTATIC LIVER INJURY [None]
  - HAEMOGLOBIN DECREASED [None]
  - HEPATOCELLULAR INJURY [None]
  - LIVER DISORDER [None]
  - RENAL FAILURE ACUTE [None]
